FAERS Safety Report 5518150-5 (Version None)
Quarter: 2007Q4

REPORT INFORMATION
  Report Type: 
  Country: None (occurrence: None)
  Receive Date: 20071113
  Receipt Date: 20071113
  Transmission Date: 20080405
  Serious: No
  Sender: FDA-Public Use
  Company Number: None

PATIENT
  Sex: Female

DRUGS (1)
  1. ZOLOFT [Suspect]
     Indication: DEPRESSION
     Dosage: 50MG  1 1/2   PO
     Route: 048
     Dates: start: 20060901, end: 20061001

REACTIONS (5)
  - ANXIETY [None]
  - CONDITION AGGRAVATED [None]
  - FATIGUE [None]
  - PAIN [None]
  - SLEEP DISORDER [None]
